FAERS Safety Report 7035914-X (Version None)
Quarter: 2010Q4

REPORT INFORMATION
  Report Type: 
  Country: None (occurrence: None)
  Receive Date: 20101008
  Receipt Date: 20101004
  Transmission Date: 20110411
  Serious: Yes (Death, Other)
  Sender: FDA-Public Use
  Company Number: PHHY2010US51392

PATIENT
  Sex: Female

DRUGS (10)
  1. RECLAST [Suspect]
     Dosage: 5 MG
     Route: 042
  2. REGLAN [Concomitant]
     Dosage: 5ML TID
  3. NEURONTIN [Concomitant]
     Dosage: 6 ML QID
  4. ETHOSUXIMIDE [Concomitant]
     Dosage: 5 ML QID
  5. CALCIUM CARBONATE [Concomitant]
     Dosage: UNK
  6. DILANTIN [Concomitant]
     Dosage: 100 MG TID
     Route: 048
  7. POTASSIUM CHLORIDE [Concomitant]
     Dosage: 100 MG BID
     Route: 048
  8. PLAVIX [Concomitant]
     Dosage: 75 MG DAILLY
  9. MIRALAX [Concomitant]
     Dosage: DAILY
  10. MIACALCIN [Concomitant]

REACTIONS (17)
  - ASPIRATION [None]
  - ATRIOVENTRICULAR BLOCK FIRST DEGREE [None]
  - BLOOD CREATININE DECREASED [None]
  - BLOOD GLUCOSE INCREASED [None]
  - BLOOD POTASSIUM DECREASED [None]
  - BRAIN HERNIATION [None]
  - CEREBRAL HAEMORRHAGE [None]
  - CEREBROVASCULAR ACCIDENT [None]
  - DYSPNOEA [None]
  - GASTROINTESTINAL SOUNDS ABNORMAL [None]
  - LOSS OF CONSCIOUSNESS [None]
  - MUSCLE RIGIDITY [None]
  - MYDRIASIS [None]
  - OEDEMA PERIPHERAL [None]
  - RED BLOOD CELLS CSF POSITIVE [None]
  - SINUS TACHYCARDIA [None]
  - UNRESPONSIVE TO STIMULI [None]
